FAERS Safety Report 5151308-6 (Version None)
Quarter: 2006Q4

REPORT INFORMATION
  Report Type: 
  Country: None (occurrence: None)
  Receive Date: 20061115
  Receipt Date: 20061113
  Transmission Date: 20070319
  Serious: Yes (Death, Life-Threatening, Other)
  Sender: FDA-Public Use
  Company Number: US-GLAXOSMITHKLINE-A0627289A

PATIENT
  Sex: Male

DRUGS (2)
  1. ADVAIR DISKUS 100/50 [Suspect]
     Indication: DRUG USE FOR UNKNOWN INDICATION
     Route: 055
  2. PREDNISONE TAB [Concomitant]
     Dosage: 5MG PER DAY

REACTIONS (1)
  - ASTHMA [None]
